FAERS Safety Report 6897012-5 (Version None)
Quarter: 2010Q3

REPORT INFORMATION
  Report Type: 
  Country: None (occurrence: None)
  Receive Date: 20100802
  Receipt Date: 20070417
  Transmission Date: 20110219
  Serious: No
  Sender: FDA-Public Use
  Company Number: US-PFIZER INC-2007013045

PATIENT
  Sex: Male
  Weight: 90.72 kg

DRUGS (10)
  1. LYRICA [Suspect]
     Indication: DIABETIC NEUROPATHY
     Dates: start: 20070101, end: 20070101
  2. NEXIUM [Concomitant]
     Indication: DYSPEPSIA
  3. GLYBURIDE [Concomitant]
     Indication: DIABETES MELLITUS
  4. AMITRIPTYLINE HYDROCHLORIDE [Concomitant]
  5. THEOPHYLLINE [Concomitant]
     Indication: ASTHMA
  6. DURAGESIC-100 [Concomitant]
     Indication: PAIN
  7. NITROGLYCERIN [Concomitant]
  8. ZOLOFT [Concomitant]
     Indication: DEPRESSION
     Dates: start: 20040101
  9. LISINOPRIL [Concomitant]
     Indication: CARDIAC DISORDER
  10. FUROSEMIDE [Concomitant]

REACTIONS (4)
  - DIZZINESS [None]
  - OEDEMA [None]
  - SOMNOLENCE [None]
  - VISION BLURRED [None]
